FAERS Safety Report 14256514 (Version 4)
Quarter: 2018Q1

REPORT INFORMATION
  Report Type: Spontaneous
  Country: US (occurrence: US)
  Receive Date: 20171206
  Receipt Date: 20180321
  Transmission Date: 20180508
  Serious: Yes (Death)
  Sender: FDA-Public Use
  Company Number: US-PFIZER INC-2017518817

PATIENT
  Age: 65 Year
  Sex: Female
  Weight: 65.31 kg

DRUGS (3)
  1. HYZAAR [Concomitant]
     Active Substance: HYDROCHLOROTHIAZIDE\LOSARTAN POTASSIUM
     Dosage: UNK
  2. K-DUR [Concomitant]
     Active Substance: POTASSIUM CHLORIDE
     Dosage: UNK
  3. SUTENT [Suspect]
     Active Substance: SUNITINIB MALATE
     Indication: METASTATIC RENAL CELL CARCINOMA
     Dosage: 37.5 MG, CYCLIC (2 WEEKS ON/1 WEEK OFF) (D1-14 Q21 DAYS)
     Route: 048
     Dates: start: 20171128, end: 201801

REACTIONS (5)
  - Arthralgia [Unknown]
  - Pain [Unknown]
  - Pain in extremity [Unknown]
  - Fatigue [Unknown]
  - Death [Fatal]

NARRATIVE: CASE EVENT DATE: 2017
